FAERS Safety Report 15047937 (Version 5)
Quarter: 2018Q3

REPORT INFORMATION
  Report Type: Spontaneous
  Country: CH (occurrence: CH)
  Receive Date: 20180622
  Receipt Date: 20180720
  Transmission Date: 20181010
  Serious: Yes (Other)
  Sender: FDA-Public Use
  Company Number: CH-ABBVIE-18K-151-2396443-00

PATIENT
  Age: 48 Year
  Sex: Female
  Weight: 58 kg

DRUGS (4)
  1. KALCIPOS D3 [Concomitant]
     Indication: PRODUCT USED FOR UNKNOWN INDICATION
     Dosage: 500/800, DURING THE WINTER
  2. ASPIRIN. [Concomitant]
     Active Substance: ASPIRIN
     Indication: TRANSIENT ISCHAEMIC ATTACK
     Dates: start: 201711
  3. HUMIRA [Suspect]
     Active Substance: ADALIMUMAB
     Indication: ANKYLOSING SPONDYLITIS
     Route: 058
  4. BRUFEN [Concomitant]
     Active Substance: IBUPROFEN
     Indication: ANKYLOSING SPONDYLITIS
     Route: 048

REACTIONS (9)
  - Gamma-glutamyltransferase increased [Unknown]
  - Primary myelofibrosis [Not Recovered/Not Resolved]
  - Arthritis [Unknown]
  - Dizziness [Unknown]
  - Blood count abnormal [Unknown]
  - Transient ischaemic attack [Recovered/Resolved]
  - Thrombocytosis [Unknown]
  - Blood bilirubin increased [Unknown]
  - Headache [Unknown]

NARRATIVE: CASE EVENT DATE: 20171127
